FAERS Safety Report 9688023 (Version 1)
Quarter: 2013Q4

REPORT INFORMATION
  Report Type: Spontaneous
  Country: CA (occurrence: CA)
  Receive Date: 20131114
  Receipt Date: 20131114
  Transmission Date: 20140711
  Serious: Yes (Death, Hospitalization)
  Sender: FDA-Public Use
  Company Number: CA-ASTELLAS-2013US011818

PATIENT
  Age: 73 Year
  Sex: Female

DRUGS (1)
  1. PROGRAF [Suspect]
     Indication: RENAL TRANSPLANT
     Dosage: UNK
     Route: 048
     Dates: start: 201211

REACTIONS (5)
  - Death [Fatal]
  - Abdominal pain upper [Unknown]
  - Back pain [Unknown]
  - Cerebrovascular accident [Unknown]
  - Renal failure [Unknown]
